FAERS Safety Report 25104309 (Version 7)
Quarter: 2025Q3

REPORT INFORMATION
  Report Type: Spontaneous
  Country: EU (occurrence: EU)
  Receive Date: 20250321
  Receipt Date: 20250704
  Transmission Date: 20251021
  Serious: Yes (Death, Hospitalization, Other)
  Sender: NOVARTIS
  Company Number: EU-002147023-NVSC2025ES047407

PATIENT
  Age: 5 Month
  Sex: Male
  Weight: 5.3 kg

DRUGS (5)
  1. ZOLGENSMA [Suspect]
     Active Substance: ONASEMNOGENE ABEPARVOVEC-XIOI
     Indication: Spinal muscular atrophy
     Route: 042
     Dates: start: 20240813, end: 20240813
  2. CHOLECALCIFEROL [Concomitant]
     Active Substance: CHOLECALCIFEROL
     Indication: Product used for unknown indication
     Dosage: 2 DRP, QD
     Route: 065
     Dates: start: 2024
  3. PREDNISOLONE [Concomitant]
     Active Substance: PREDNISOLONE
     Indication: Product used for unknown indication
     Route: 048
     Dates: start: 20240811, end: 20241108
  4. OMEPRAZOLE [Concomitant]
     Active Substance: OMEPRAZOLE
     Indication: Prophylaxis
     Route: 042
     Dates: start: 20241212
  5. AMOXICILLIN\CLAVULANIC ACID [Concomitant]
     Active Substance: AMOXICILLIN\CLAVULANIC ACID
     Indication: Endotracheal intubation
     Route: 065

REACTIONS (46)
  - Death [Fatal]
  - Loss of consciousness [Fatal]
  - Cardio-respiratory arrest [Fatal]
  - Hypovolaemia [Fatal]
  - Myocardial stunning [Fatal]
  - Metabolic acidosis [Fatal]
  - Hyperlactacidaemia [Fatal]
  - Troponin increased [Fatal]
  - Brain natriuretic peptide increased [Fatal]
  - Wound dehiscence [Fatal]
  - Polyuria [Fatal]
  - Abdominal distension [Fatal]
  - Pneumatosis intestinalis [Fatal]
  - Pneumobilia [Fatal]
  - Volvulus [Fatal]
  - Acute phase reaction [Fatal]
  - Central nervous system lesion [Fatal]
  - Hypoxic ischaemic encephalopathy neonatal [Fatal]
  - Secretion discharge [Fatal]
  - Respiratory symptom [Fatal]
  - Dysphagia [Unknown]
  - Motor neurone disease [Unknown]
  - Pneumothorax [Recovered/Resolved]
  - Pneumonia [Unknown]
  - Glomerular vascular disorder [Unknown]
  - Pseudomonas infection [Recovered/Resolved]
  - Pupil fixed [Unknown]
  - Pseudomonas infection [Unknown]
  - Cutaneous vasculitis [Unknown]
  - Hypotension [Unknown]
  - Monocytosis [Unknown]
  - Lymphocytosis [Recovered/Resolved]
  - Liver disorder [Unknown]
  - Muscle disorder [Unknown]
  - Posture abnormal [Unknown]
  - Hyperglycaemia [Unknown]
  - Dyspnoea [Unknown]
  - Gastrointestinal disorder [Unknown]
  - Secretion discharge [Unknown]
  - Saliva altered [Unknown]
  - International normalised ratio increased [Unknown]
  - Transaminases increased [Unknown]
  - Haemophilus infection [Recovered/Resolved]
  - Rhinovirus infection [Recovered/Resolved]
  - Parainfluenzae virus infection [Recovered/Resolved]
  - Miosis [Unknown]

NARRATIVE: CASE EVENT DATE: 20240101
